FAERS Safety Report 11577427 (Version 4)
Quarter: 2015Q4

REPORT INFORMATION
  Report Type: Spontaneous
  Country: DE (occurrence: DE)
  Receive Date: 20150930
  Receipt Date: 20151201
  Transmission Date: 20160304
  Serious: Yes (Other)
  Sender: FDA-Public Use
  Company Number: DE-JNJFOC-20150922678

PATIENT
  Sex: Male

DRUGS (7)
  1. ZYTIGA [Suspect]
     Active Substance: ABIRATERONE ACETATE
     Indication: PRODUCT USED FOR UNKNOWN INDICATION
     Route: 048
     Dates: end: 20150916
  2. ZYTIGA [Suspect]
     Active Substance: ABIRATERONE ACETATE
     Indication: PRODUCT USED FOR UNKNOWN INDICATION
     Route: 048
     Dates: start: 20150917, end: 20150925
  3. CEFASEL [Concomitant]
     Dosage: SINCE LONGER TIME
     Route: 065
  4. CONCOR [Concomitant]
     Active Substance: BISOPROLOL FUMARATE
     Indication: BLOOD PRESSURE INCREASED
     Route: 065
  5. TEBONIN INTENS [Concomitant]
     Dosage: SINCE LONGER TIME
     Route: 065
  6. PREDNISOLONE. [Concomitant]
     Active Substance: PREDNISOLONE
     Route: 065
     Dates: start: 20150917
  7. NOCTAMID [Concomitant]
     Active Substance: LORMETAZEPAM
     Dosage: EVENING, SINCE LONGER TIME
     Route: 065

REACTIONS (1)
  - Palpitations [Not Recovered/Not Resolved]
